FAERS Safety Report 17218632 (Version 1)
Quarter: 2019Q4

REPORT INFORMATION
  Report Type: Spontaneous
  Country: CN (occurrence: CN)
  Receive Date: 20191231
  Receipt Date: 20191231
  Transmission Date: 20200122
  Serious: Yes (Hospitalization)
  Sender: FDA-Public Use
  Company Number: CN-ROCHE-2506315

PATIENT
  Age: 47 Year
  Sex: Male
  Weight: 50 kg

DRUGS (13)
  1. CYTARABINE HYDROCHLORIDE [Suspect]
     Active Substance: CYTARABINE HYDROCHLORIDE
     Indication: DIFFUSE LARGE B-CELL LYMPHOMA
     Route: 041
     Dates: start: 20191106, end: 20191107
  2. CYTARABINE HYDROCHLORIDE [Suspect]
     Active Substance: CYTARABINE HYDROCHLORIDE
     Route: 041
     Dates: start: 20191204, end: 20191205
  3. METHOTREXATE. [Suspect]
     Active Substance: METHOTREXATE
     Route: 041
     Dates: start: 20191207, end: 20191207
  4. SODIUM CHLORIDE IV [Concomitant]
     Active Substance: SODIUM CHLORIDE
     Dosage: SOLVENT FOR RITUXIMAB
     Route: 041
     Dates: start: 20191106, end: 20191106
  5. SODIUM CHLORIDE IV [Concomitant]
     Active Substance: SODIUM CHLORIDE
     Dosage: SOLVENT FOR CYTARABINE HYDROCHLORIDE FOR INJECTION
     Route: 041
     Dates: start: 20191204, end: 20191205
  6. SODIUM CHLORIDE IV [Concomitant]
     Active Substance: SODIUM CHLORIDE
     Dosage: SOLVENT FOR METHOTREXATE INJECTION
     Route: 041
     Dates: start: 20191207, end: 20191207
  7. MABTHERA [Suspect]
     Active Substance: RITUXIMAB
     Indication: DIFFUSE LARGE B-CELL LYMPHOMA
     Dosage: 100 AND 500 MG
     Route: 041
     Dates: start: 20191106, end: 20191106
  8. MABTHERA [Suspect]
     Active Substance: RITUXIMAB
     Dosage: 100 AND 500 MG
     Route: 041
     Dates: start: 20191204, end: 20191204
  9. SODIUM CHLORIDE IV [Concomitant]
     Active Substance: SODIUM CHLORIDE
     Dosage: SOLVENT FOR CYTARABINE HYDROCHLORIDE FOR INJECTION
     Route: 041
     Dates: start: 20191106, end: 20191107
  10. SODIUM CHLORIDE IV [Concomitant]
     Active Substance: SODIUM CHLORIDE
     Dosage: SOLVENT FOR METHOTREXATE INJECTION
     Route: 041
     Dates: start: 20191109, end: 20191109
  11. SODIUM CHLORIDE IV [Concomitant]
     Active Substance: SODIUM CHLORIDE
     Dosage: SOLVENT FOR RITUXIMAB
     Route: 041
     Dates: start: 20191204, end: 20191204
  12. SODIUM CHLORIDE IV [Concomitant]
     Active Substance: SODIUM CHLORIDE
     Dosage: SOLVENT FOR METHOTREXATE INJECTION
     Route: 041
     Dates: start: 20191109, end: 20191109
  13. METHOTREXATE. [Suspect]
     Active Substance: METHOTREXATE
     Indication: DIFFUSE LARGE B-CELL LYMPHOMA
     Route: 041
     Dates: start: 20191109, end: 20191109

REACTIONS (4)
  - Vomiting [Recovering/Resolving]
  - Nausea [Recovering/Resolving]
  - Bone marrow failure [Recovering/Resolving]
  - Gastrooesophageal reflux disease [Recovering/Resolving]

NARRATIVE: CASE EVENT DATE: 20191109
